FAERS Safety Report 18923046 (Version 3)
Quarter: 2021Q4

REPORT INFORMATION
  Report Type: Spontaneous
  Country: GB (occurrence: GB)
  Receive Date: 20210222
  Receipt Date: 20211223
  Transmission Date: 20220304
  Serious: Yes (Other)
  Sender: FDA-Public Use
  Company Number: GB-CRESPROD-2020-00333

PATIENT
  Age: 46 Year
  Sex: Female

DRUGS (8)
  1. NAPROXEN [Suspect]
     Active Substance: NAPROXEN
     Indication: Product used for unknown indication
     Dosage: 500 MILLIGRAM, EVERY 12 HOURS (250MG TABLETS 2 IN MORNING AND 2 AT NIGHT)
     Route: 048
     Dates: end: 20210115
  2. NAPROXEN [Suspect]
     Active Substance: NAPROXEN
     Dosage: UNK
     Dates: start: 2021, end: 2021
  3. TRAMADOL [Concomitant]
     Active Substance: TRAMADOL
     Indication: Product used for unknown indication
     Dosage: 100 MILLIGRAM, QD
  4. TRAMADOL [Concomitant]
     Active Substance: TRAMADOL
     Dosage: UNK
  5. CHLORPHENIRAMINE MALEATE [Concomitant]
     Active Substance: CHLORPHENIRAMINE MALEATE
     Indication: Product used for unknown indication
     Dosage: 16 MILLIGRAM, QD (4MG 4 AT NIGHT)
  6. OMEPRAZOLE [Concomitant]
     Active Substance: OMEPRAZOLE
     Indication: Product used for unknown indication
     Dosage: 1 DOSAGE FORM, AM (ONE TABLET WITH NAPROXEN IN THE MORNING)
  7. COCODAMOL [Concomitant]
     Active Substance: ACETAMINOPHEN\CODEINE PHOSPHATE
     Indication: Product used for unknown indication
     Dosage: 30/500 2 ONCE A DAY
  8. SERTRALINE [Concomitant]
     Active Substance: SERTRALINE HYDROCHLORIDE
     Indication: Product used for unknown indication
     Dosage: 50 MILLIGRAM, QD

REACTIONS (6)
  - Pseudoporphyria [Unknown]
  - Dermatitis bullous [Unknown]
  - Skin atrophy [Not Recovered/Not Resolved]
  - Wound [Not Recovered/Not Resolved]
  - Scar [Not Recovered/Not Resolved]
  - Blister [Not Recovered/Not Resolved]
